FAERS Safety Report 4697505-5 (Version None)
Quarter: 2005Q2

REPORT INFORMATION
  Report Type: 
  Country: None (occurrence: None)
  Receive Date: 20050622
  Receipt Date: 20050601
  Transmission Date: 20051028
  Serious: Yes (Hospitalization)
  Sender: FDA-Public Use
  Company Number: JP-MERCK-0506USA00640

PATIENT
  Age: 90 Year
  Sex: Female

DRUGS (8)
  1. PEPCID [Suspect]
     Indication: PROPHYLAXIS
     Route: 048
     Dates: start: 20040623, end: 20050530
  2. PRAVASTATIN SODIUM [Suspect]
     Indication: HYPERLIPIDAEMIA
     Route: 048
     Dates: start: 20040623, end: 20050530
  3. ONEALFA [Suspect]
     Indication: OSTEOPOROSIS
     Route: 048
     Dates: start: 20040623, end: 20050530
  4. PREDONINE [Concomitant]
     Route: 048
     Dates: start: 20050412, end: 20050530
  5. PREDONINE [Concomitant]
     Route: 048
     Dates: start: 20050531, end: 20050604
  6. PREDONINE [Concomitant]
     Route: 048
     Dates: start: 20050605
  7. DIART [Concomitant]
     Route: 048
     Dates: start: 20050412
  8. LASIX [Concomitant]
     Route: 048
     Dates: start: 20050502, end: 20050603

REACTIONS (2)
  - SPEECH DISORDER [None]
  - TREMOR [None]
